FAERS Safety Report 12145974 (Version 1)
Quarter: 2016Q1

REPORT INFORMATION
  Report Type: Spontaneous
  Country: US (occurrence: US)
  Receive Date: 20160304
  Receipt Date: 20160304
  Transmission Date: 20160526
  Serious: No
  Sender: FDA-Public Use
  Company Number: US-PERRIGO-15US003015

PATIENT
  Sex: Female
  Weight: 63.49 kg

DRUGS (3)
  1. ASPIRIN. [Concomitant]
     Active Substance: ASPIRIN
     Indication: THROMBOSIS PROPHYLAXIS
     Dosage: 81 MG, UNK
     Route: 065
     Dates: start: 201405
  2. NAPROXEN 220 MG 140 [Suspect]
     Active Substance: NAPROXEN
     Indication: MYALGIA
     Dosage: 220 MG TO 440 MG, BID
     Route: 048
     Dates: start: 2014
  3. DEXAMETHASONE. [Concomitant]
     Active Substance: DEXAMETHASONE
     Indication: PLASMA CELL MYELOMA
     Dosage: UNK, WEEKLY
     Route: 065
     Dates: start: 201306

REACTIONS (3)
  - Incorrect dose administered [Unknown]
  - No adverse event [Recovered/Resolved]
  - Incorrect drug administration duration [Unknown]

NARRATIVE: CASE EVENT DATE: 2014
